FAERS Safety Report 9351702 (Version 1)
Quarter: 2013Q2

REPORT INFORMATION
  Report Type: Spontaneous
  Country: RS (occurrence: RS)
  Receive Date: 20130617
  Receipt Date: 20130617
  Transmission Date: 20140414
  Serious: Yes (Other)
  Sender: FDA-Public Use
  Company Number: RS-ACTAVIS-2013-10271

PATIENT
  Age: 13 Year
  Sex: Female

DRUGS (10)
  1. FLUOROURACIL (UNKNOWN) [Suspect]
     Indication: COLORECTAL CANCER METASTATIC
     Dosage: 400 MG/M*2 ON DAY 1 AND 1200 MG/M*2 ON DAYS 2 AND 3, IN 9 CYCLES (EVERY 2 WEEKS)
     Route: 065
  2. FLUOROURACIL (UNKNOWN) [Suspect]
     Dosage: 600 MG/M*2 ON DAYS 1 AND 2, IN 9 CYCLES
     Route: 065
  3. OXALIPLATIN (UNKNOWN) [Suspect]
     Indication: COLORECTAL CANCER METASTATIC
     Dosage: 85 MG/M*2 ON DAY 1, IN  9 CYCLES
     Route: 065
  4. CALCIUM FOLINATE (UNKNOWN) [Suspect]
     Indication: COLORECTAL CANCER METASTATIC
     Dosage: 400 MG/M*2 ON DAY 1, IN 9 CYCLES (EVERY 2 WEEKS)
     Route: 065
  5. CALCIUM FOLINATE (UNKNOWN) [Suspect]
     Dosage: 200 MG/M*2 ON DAYS 1 AND 2, IN 9 CYCLES
     Route: 065
  6. CAPECITABINE (UNKNOWN) [Suspect]
     Indication: COLORECTAL CANCER METASTATIC
     Dosage: 1250 MG/M*2 DAYS 1-14, TWO CYCLES, EVERY 3 WEEKS
     Route: 065
  7. IRINOTECAN HYDROCHLORIDE (UNKNOWN) [Suspect]
     Indication: COLORECTAL CANCER METASTATIC
     Dosage: 180 MG/M*2 ON DAY 1,IN 9 CYCLES EVERY 2 WEEKS
     Route: 065
  8. BEVACIZUMAB [Suspect]
     Indication: COLORECTAL CANCER METASTATIC
     Dosage: 5 MG/M*2 ON DAY 1, IN 2 CYCLES, EVERY 2 WEEKS
     Route: 065
  9. BEVACIZUMAB [Suspect]
     Dosage: 7.5 MG/M*2 ON DAY 1, IN 2 CYCLES, EVERY 3 WEEKS
     Route: 065
  10. CETUXIMAB [Suspect]
     Indication: COLORECTAL CANCER METASTATIC
     Dosage: 500 MG/M*2, IN 9 CYCLES (EVERY 2 WEEKS)
     Route: 065

REACTIONS (8)
  - Neutropenia [Unknown]
  - Anaemia [Unknown]
  - Paraesthesia [Unknown]
  - Nausea [Unknown]
  - Paronychia [Unknown]
  - Hepatomegaly [None]
  - Disease progression [None]
  - Colorectal cancer metastatic [None]
